FAERS Safety Report 4660229-4 (Version None)
Quarter: 2005Q2

REPORT INFORMATION
  Report Type: 
  Country: None (occurrence: None)
  Receive Date: 20050505
  Receipt Date: 20050212
  Transmission Date: 20051028
  Serious: No
  Sender: FDA-Public Use
  Company Number: 2005USFACT00317

PATIENT
  Age: 47 Year
  Sex: Female
  Weight: 62.1 kg

DRUGS (5)
  1. FACTIVE [Suspect]
     Indication: RESPIRATORY TRACT INFECTION BACTERIAL
     Dosage: 320.00 MG, QD, ORAL
     Route: 048
     Dates: start: 20050211, end: 20050212
  2. SYNTHROID [Concomitant]
  3. ALBUTEROL [Concomitant]
  4. CLARITIN [Concomitant]
  5. ALLEGRA [Concomitant]

REACTIONS (3)
  - DIZZINESS [None]
  - FEELING DRUNK [None]
  - SOMNOLENCE [None]
